FAERS Safety Report 25632711 (Version 1)
Quarter: 2025Q3

REPORT INFORMATION
  Report Type: Spontaneous
  Country: US (occurrence: US)
  Receive Date: 20250801
  Receipt Date: 20250801
  Transmission Date: 20251021
  Serious: Yes (Other)
  Sender: ALEXION PHARMACEUTICALS
  Company Number: US-AstraZeneca-CH-00916068A

PATIENT
  Age: 87 Year
  Sex: Male
  Weight: 56.699 kg

DRUGS (1)
  1. FARXIGA [Suspect]
     Active Substance: DAPAGLIFLOZIN PROPANEDIOL
     Indication: Chronic kidney disease
     Dosage: 5 MILLIGRAM, QD
     Dates: start: 202405

REACTIONS (5)
  - Proctalgia [Not Recovered/Not Resolved]
  - Anal erythema [Not Recovered/Not Resolved]
  - Genital pain [Not Recovered/Not Resolved]
  - Genital erythema [Not Recovered/Not Resolved]
  - Scrotal exfoliation [Not Recovered/Not Resolved]

NARRATIVE: CASE EVENT DATE: 20241001
